FAERS Safety Report 4610881-4 (Version None)
Quarter: 2005Q2

REPORT INFORMATION
  Report Type: 
  Country: None (occurrence: None)
  Receive Date: 20050301
  Receipt Date: 20040326
  Transmission Date: 20051028
  Serious: Yes (Other)
  Sender: FDA-Public Use
  Company Number: MYAM000007

PATIENT
  Age: 78 Year
  Sex: Female

DRUGS (3)
  1. MYAMBUTOL [Suspect]
     Indication: DRUG USE FOR UNKNOWN INDICATION
     Dosage: UNK ORAL
     Route: 048
     Dates: start: 20030501, end: 20040201
  2. BIAXIN [Concomitant]
  3. RIFAMPICIN [Concomitant]

REACTIONS (1)
  - VISUAL ACUITY REDUCED [None]
